FAERS Safety Report 15499601 (Version 1)
Quarter: 2018Q4

REPORT INFORMATION
  Report Type: Spontaneous
  Country: US (occurrence: US)
  Receive Date: 20181009
  Receipt Date: 20181009
  Transmission Date: 20190205
  Serious: No
  Sender: FDA-Public Use
  Company Number: None

PATIENT
  Age: 64 Year
  Sex: Male

DRUGS (1)
  1. H.P. ACTHAR [Suspect]
     Active Substance: CORTICOTROPIN
     Dates: start: 201807, end: 201809

REACTIONS (5)
  - Tremor [None]
  - Confusional state [None]
  - Euphoric mood [None]
  - Diarrhoea [None]
  - Thinking abnormal [None]

NARRATIVE: CASE EVENT DATE: 20180731
